FAERS Safety Report 9282020 (Version 5)
Quarter: 2013Q4

REPORT INFORMATION
  Report Type: Spontaneous
  Country: US (occurrence: US)
  Receive Date: 20130510
  Receipt Date: 20131204
  Transmission Date: 20140711
  Serious: No
  Sender: FDA-Public Use
  Company Number: US-BIOGENIDEC-2013BI037048

PATIENT
  Age: 64 Year
  Sex: Male

DRUGS (7)
  1. AVONEX [Suspect]
     Indication: MULTIPLE SCLEROSIS
     Route: 030
     Dates: start: 20121022, end: 2012
  2. AVONEX [Suspect]
     Indication: MULTIPLE SCLEROSIS
     Route: 030
     Dates: start: 2012
  3. TYLENOL [Concomitant]
     Indication: MIGRAINE
  4. ASPRIN [Concomitant]
     Indication: CEREBROVASCULAR ACCIDENT
     Route: 048
  5. LYRICA [Concomitant]
     Indication: PRODUCT USED FOR UNKNOWN INDICATION
  6. SUMATRIPTAN SUCC [Concomitant]
     Indication: MIGRAINE
     Route: 048
  7. NUEDEXTA 20/10 MG [Concomitant]
     Indication: MIGRAINE

REACTIONS (32)
  - Stress [Unknown]
  - Gastrooesophageal reflux disease [Unknown]
  - Nasal disorder [Unknown]
  - Nasopharyngitis [Unknown]
  - Central nervous system lesion [Unknown]
  - Loss of consciousness [Recovered/Resolved]
  - Fall [Recovered/Resolved]
  - Intentional self-injury [Unknown]
  - Haemorrhage [Unknown]
  - Hypertension [Not Recovered/Not Resolved]
  - Mental impairment [Not Recovered/Not Resolved]
  - Gait disturbance [Not Recovered/Not Resolved]
  - Memory impairment [Not Recovered/Not Resolved]
  - Migraine [Recovered/Resolved]
  - Cognitive disorder [Unknown]
  - Visual impairment [Unknown]
  - Balance disorder [Unknown]
  - Mobility decreased [Unknown]
  - Vertigo [Unknown]
  - Injection site haemorrhage [Recovered/Resolved]
  - Headache [Recovered/Resolved]
  - Feeling abnormal [Unknown]
  - Paraesthesia [Unknown]
  - Chest discomfort [Unknown]
  - Chest pain [Recovered/Resolved]
  - Rash erythematous [Unknown]
  - Rash pruritic [Unknown]
  - Influenza like illness [Recovered/Resolved with Sequelae]
  - Depression [Not Recovered/Not Resolved]
  - Malaise [Recovered/Resolved]
  - Anxiety [Recovered/Resolved]
  - Depressed mood [Unknown]
